FAERS Safety Report 23158045 (Version 2)
Quarter: 2023Q4

REPORT INFORMATION
  Report Type: Spontaneous
  Country: US (occurrence: US)
  Receive Date: 20231108
  Receipt Date: 20231124
  Transmission Date: 20240110
  Serious: No
  Sender: FDA-Public Use
  Company Number: US-LUPIN PHARMACEUTICALS INC.-2023-09883

PATIENT

DRUGS (2)
  1. SERTRALINE HYDROCHLORIDE [Interacting]
     Active Substance: SERTRALINE HYDROCHLORIDE
     Indication: Product used for unknown indication
     Dosage: UNK
     Route: 065
     Dates: start: 20231024, end: 20231025
  2. CANNABIDIOL\HERBALS [Interacting]
     Active Substance: CANNABIDIOL\HERBALS
     Indication: Product used for unknown indication
     Dosage: UNK, AT NIGHT
     Route: 065
     Dates: start: 20231024

REACTIONS (3)
  - Malaise [Unknown]
  - Drug interaction [Unknown]
  - Expired product administered [Unknown]

NARRATIVE: CASE EVENT DATE: 20231001
